FAERS Safety Report 12545505 (Version 3)
Quarter: 2017Q1

REPORT INFORMATION
  Report Type: Spontaneous
  Country: US (occurrence: US)
  Receive Date: 20160711
  Receipt Date: 20170314
  Transmission Date: 20170428
  Serious: Yes (Other)
  Sender: FDA-Public Use
  Company Number: US-PFIZER INC-2016328219

PATIENT
  Age: 67 Year
  Sex: Male

DRUGS (3)
  1. FOSCARNET SODIUM. [Suspect]
     Active Substance: FOSCARNET SODIUM
     Indication: MOUTH ULCERATION
     Dosage: 60 MG/KG POST HEMODIALYSIS
  2. FOSCARNET SODIUM. [Suspect]
     Active Substance: FOSCARNET SODIUM
     Indication: CONGENITAL HERPES SIMPLEX INFECTION
     Dosage: 90 MG/KG, DAILY (Q 12 H)
  3. VALACICLOVIR [Concomitant]
     Active Substance: VALACYCLOVIR HYDROCHLORIDE
     Indication: MOUTH ULCERATION
     Dosage: 1 G, 2X/DAY
     Route: 048

REACTIONS (1)
  - Renal failure [Unknown]
